FAERS Safety Report 7194347-6 (Version None)
Quarter: 2010Q4

REPORT INFORMATION
  Report Type: 
  Country: None (occurrence: None)
  Receive Date: 20101223
  Receipt Date: 20101213
  Transmission Date: 20110411
  Serious: Yes (Life-Threatening, Hospitalization, Other)
  Sender: FDA-Public Use
  Company Number: US-ELI_LILLY_AND_COMPANY-US201012003918

PATIENT
  Sex: Female

DRUGS (8)
  1. CYMBALTA [Suspect]
     Indication: DEPRESSION
     Dosage: 30 MG, DAILY (1/D)
  2. CYMBALTA [Suspect]
     Dosage: 30 MG, DAILY (1/D)
     Dates: start: 20100801
  3. CYMBALTA [Suspect]
     Dosage: 60 MG, DAILY (1/D)
  4. CYMBALTA [Suspect]
     Dosage: 30 MG, DAILY (1/D)
  5. HEPARIN [Concomitant]
  6. PROTONIX [Concomitant]
  7. ZOLOFT [Concomitant]
  8. COUMADIN [Concomitant]

REACTIONS (19)
  - ABNORMAL SENSATION IN EYE [None]
  - ADVERSE EVENT [None]
  - ARTERIOSCLEROSIS [None]
  - AURA [None]
  - BALANCE DISORDER [None]
  - BLINDNESS [None]
  - CEREBRAL HAEMORRHAGE [None]
  - CONFUSIONAL STATE [None]
  - DIPLOPIA [None]
  - DISTURBANCE IN ATTENTION [None]
  - EYE MOVEMENT DISORDER [None]
  - GAIT DISTURBANCE [None]
  - HAEMORRHAGE [None]
  - OBESITY SURGERY [None]
  - POST PROCEDURAL COMPLICATION [None]
  - STRABISMUS [None]
  - THINKING ABNORMAL [None]
  - VISUAL ACUITY REDUCED [None]
  - VISUAL IMPAIRMENT [None]
